FAERS Safety Report 9663066 (Version 10)
Quarter: 2014Q1

REPORT INFORMATION
  Report Type: Report from Study
  Country: US (occurrence: US)
  Receive Date: 20131031
  Receipt Date: 20140106
  Transmission Date: 20141002
  Serious: Yes (Life-Threatening, Hospitalization, Other)
  Sender: FDA-Public Use
  Company Number: US-TEVA-441083USA

PATIENT
  Age: 8 Month
  Sex: Male
  Weight: 8.57 kg

DRUGS (7)
  1. LESTAURTINIB [Suspect]
     Dates: start: 20130712, end: 20131214
  2. CYCLOPHOSPHAMIDE [Suspect]
     Dates: end: 20131118
  3. CYTARABINE [Suspect]
     Dates: end: 20131201
  4. ETOPOSIDE [Suspect]
     Dates: end: 20131118
  5. FOLINIC ACID [Suspect]
     Dates: start: 20130712, end: 20131109
  6. METHOTREXATE [Suspect]
     Dates: start: 20130712, end: 20131106
  7. PEG-L-ASPARAGINASE [Suspect]
     Dates: end: 20131202

REACTIONS (14)
  - Aspartate aminotransferase increased [Recovered/Resolved]
  - Anaemia [Recovered/Resolved]
  - Anaphylactic reaction [Recovered/Resolved]
  - Alanine aminotransferase increased [Recovered/Resolved]
  - Diarrhoea [Recovered/Resolved]
  - Febrile neutropenia [Recovered/Resolved]
  - Pyrexia [Recovering/Resolving]
  - Hypoalbuminaemia [Recovered/Resolved]
  - Stomatitis [Recovered/Resolved]
  - Neutrophil count decreased [Recovered/Resolved]
  - Dermatitis diaper [Recovered/Resolved]
  - Soft tissue infection [Recovered/Resolved]
  - Platelet count decreased [Recovered/Resolved]
  - White blood cell count decreased [Recovered/Resolved]
